FAERS Safety Report 5567544-0 (Version None)
Quarter: 2007Q4

REPORT INFORMATION
  Report Type: 
  Country: None (occurrence: None)
  Receive Date: 20071214
  Receipt Date: 20071130
  Transmission Date: 20080405
  Serious: Yes (Disabling)
  Sender: FDA-Public Use
  Company Number: 2007AL005207

PATIENT
  Age: 52 Year
  Sex: Female

DRUGS (3)
  1. IBUPROFEN [Suspect]
     Dosage: 600 MG; QID; PO
     Route: 048
     Dates: start: 19960101, end: 19980301
  2. UNSPECIFIED HORMONES [Concomitant]
  3. MORPHINE [Concomitant]

REACTIONS (12)
  - DIARRHOEA [None]
  - DYSPHONIA [None]
  - GASTRITIS [None]
  - GASTROINTESTINAL PAIN [None]
  - GASTROOESOPHAGEAL REFLUX DISEASE [None]
  - IMPAIRED GASTRIC EMPTYING [None]
  - PHOTOPHOBIA [None]
  - PNEUMONIA [None]
  - RECTAL HAEMORRHAGE [None]
  - TOOTH EROSION [None]
  - TOTAL LUNG CAPACITY DECREASED [None]
  - WEIGHT DECREASED [None]
